FAERS Safety Report 6252037-8 (Version None)
Quarter: 2009Q2

REPORT INFORMATION
  Report Type: 
  Country: None (occurrence: None)
  Receive Date: 20090630
  Receipt Date: 20060604
  Transmission Date: 20091009
  Serious: Yes (Death, Hospitalization)
  Sender: FDA-Public Use
  Company Number: US-ROCHE-638673

PATIENT
  Sex: Male

DRUGS (7)
  1. ENFUVIRTIDE [Suspect]
     Route: 065
     Dates: start: 20040902, end: 20060720
  2. APTIVUS [Concomitant]
     Dates: start: 20040722, end: 20060720
  3. NORVIR [Concomitant]
     Dates: start: 20040722, end: 20060720
  4. SUSTIVA [Concomitant]
     Dates: start: 20040722, end: 20060720
  5. VIREAD [Concomitant]
     Dates: start: 20040722, end: 20060720
  6. PREZISTA [Concomitant]
     Dates: start: 20060603, end: 20060720
  7. DAPSONE [Concomitant]
     Dates: start: 20030327, end: 20060720

REACTIONS (6)
  - BLINDNESS CORTICAL [None]
  - CONVULSION [None]
  - DEATH [None]
  - DIARRHOEA [None]
  - HIV INFECTION [None]
  - PROGRESSIVE MULTIFOCAL LEUKOENCEPHALOPATHY [None]
